FAERS Safety Report 6163249-6 (Version None)
Quarter: 2009Q2

REPORT INFORMATION
  Report Type: 
  Country: None (occurrence: None)
  Receive Date: 20090422
  Receipt Date: 20090414
  Transmission Date: 20091009
  Serious: Yes (Hospitalization)
  Sender: FDA-Public Use
  Company Number: US-JNJFOC-20090303290

PATIENT
  Sex: Male
  Weight: 97.98 kg

DRUGS (4)
  1. REMICADE [Suspect]
     Route: 042
  2. REMICADE [Suspect]
     Indication: PSORIATIC ARTHROPATHY
     Dosage: ON THERAPY ^FOR YEARS^
     Route: 042
  3. BETA BLOCKER [Concomitant]
     Indication: CARDIAC DISORDER
  4. ACE INHIBITOR [Concomitant]
     Indication: CARDIAC DISORDER

REACTIONS (2)
  - INFUSION RELATED REACTION [None]
  - NODAL ARRHYTHMIA [None]
